FAERS Safety Report 5163475-9 (Version None)
Quarter: 2006Q4

REPORT INFORMATION
  Report Type: 
  Country: None (occurrence: None)
  Receive Date: 20061204
  Receipt Date: 20061120
  Transmission Date: 20070319
  Serious: Yes (Death, Other)
  Sender: FDA-Public Use
  Company Number: US-JNJFOC-20061105956

PATIENT
  Sex: Male
  Weight: 150 kg

DRUGS (1)
  1. REOPRO [Suspect]
     Indication: CARDIAC ARREST
     Route: 022

REACTIONS (2)
  - CARDIAC ARREST [None]
  - MEDICATION ERROR [None]
